FAERS Safety Report 8017780-9 (Version None)
Quarter: 2012Q1

REPORT INFORMATION
  Report Type: 
  Country: None (occurrence: None)
  Receive Date: 20120103
  Receipt Date: 20111228
  Transmission Date: 20120608
  Serious: No
  Sender: FDA-Public Use
  Company Number: US-PFIZER INC-2011315411

PATIENT
  Sex: Female

DRUGS (2)
  1. DICYCLOMINE [Concomitant]
     Dosage: UNK
  2. LEVOXYL [Suspect]
     Indication: THYROID DISORDER
     Dosage: 125 UG, 1X/DAY
     Route: 048
     Dates: start: 20111116

REACTIONS (1)
  - ABDOMINAL DISCOMFORT [None]
